FAERS Safety Report 7237296-7 (Version None)
Quarter: 2011Q1

REPORT INFORMATION
  Report Type: 
  Country: None (occurrence: None)
  Receive Date: 20110121
  Receipt Date: 20110110
  Transmission Date: 20110831
  Serious: Yes (Other)
  Sender: FDA-Public Use
  Company Number: US-JNJFOC-20110102910

PATIENT
  Sex: Female

DRUGS (2)
  1. CONCENTRATED TYLENOL INFANT DROPS [Suspect]
     Indication: PYREXIA
     Route: 048
  2. CONCENTRATED TYLENOL INFANT DROPS [Suspect]
     Route: 048

REACTIONS (2)
  - PRODUCT QUALITY ISSUE [None]
  - PYREXIA [None]
